FAERS Safety Report 8419608-1 (Version None)
Quarter: 2012Q2

REPORT INFORMATION
  Report Type: 
  Country: None (occurrence: None)
  Receive Date: 20120607
  Receipt Date: 20120530
  Transmission Date: 20120825
  Serious: Yes (Other)
  Sender: FDA-Public Use
  Company Number: US-MERCK-1203USA01331

PATIENT
  Age: 80 Year
  Sex: Female

DRUGS (3)
  1. FOSAMAX [Suspect]
     Indication: OSTEOPOROSIS
     Route: 048
     Dates: start: 20030601
  2. FOSAMAX [Suspect]
     Route: 048
     Dates: start: 20080201
  3. ALENDRONATE SODIUM [Suspect]
     Route: 065
     Dates: start: 20080801

REACTIONS (42)
  - BLISTER [None]
  - BREAST MASS [None]
  - RECTAL HAEMORRHAGE [None]
  - MASS [None]
  - RENAL FAILURE [None]
  - ECZEMA [None]
  - EYE PRURITUS [None]
  - KYPHOSIS [None]
  - ARTHRITIS [None]
  - ECCHYMOSIS [None]
  - EYE OEDEMA [None]
  - TOOTH DISORDER [None]
  - HERPES ZOSTER [None]
  - ANGIOEDEMA [None]
  - ARTHRALGIA [None]
  - ORAL INFECTION [None]
  - DENTAL FISTULA [None]
  - APPENDIX DISORDER [None]
  - CATARACT [None]
  - DEVICE BREAKAGE [None]
  - DIARRHOEA [None]
  - WEIGHT DECREASED [None]
  - PERIODONTAL DISEASE [None]
  - HYPERTENSION [None]
  - GOUT [None]
  - OSTEONECROSIS OF JAW [None]
  - DEAFNESS [None]
  - VIITH NERVE PARALYSIS [None]
  - GINGIVITIS [None]
  - ASTHENIA [None]
  - NORMOCHROMIC NORMOCYTIC ANAEMIA [None]
  - HYPOKALAEMIA [None]
  - CELLULITIS [None]
  - FRACTURE [None]
  - URTICARIA [None]
  - TOOTH ABSCESS [None]
  - FATIGUE [None]
  - WOUND DEHISCENCE [None]
  - MUSCULOSKELETAL PAIN [None]
  - OSTEOPENIA [None]
  - CONSTIPATION [None]
  - HYPERLIPIDAEMIA [None]
